FAERS Safety Report 4623434-9 (Version None)
Quarter: 2005Q1

REPORT INFORMATION
  Report Type: 
  Country: None (occurrence: None)
  Receive Date: 20050330
  Receipt Date: 20050316
  Transmission Date: 20050727
  Serious: Yes (Hospitalization, Other)
  Sender: FDA-Public Use
  Company Number: 2005045703

PATIENT
  Sex: Male
  Weight: 117.9352 kg

DRUGS (6)
  1. NEURONTIN [Suspect]
     Indication: HERPES ZOSTER
     Dosage: 1800 MG (600 MG, 3 IN 1 D), ORAL
     Route: 048
  2. SIMVASTATIN [Concomitant]
  3. METOPROLOL TARTRATE [Concomitant]
  4. CLOPIDOGREL BISULFATE [Concomitant]
  5. ASPIRIN [Concomitant]
  6. DEXAMETHASONE [Concomitant]

REACTIONS (8)
  - CORONARY ARTERY OCCLUSION [None]
  - DRUG EFFECT DECREASED [None]
  - GASTRIC DISORDER [None]
  - GASTROOESOPHAGEAL REFLUX DISEASE [None]
  - LUNG DISORDER [None]
  - MYOCARDIAL INFARCTION [None]
  - NAUSEA [None]
  - URINE OUTPUT DECREASED [None]
